FAERS Safety Report 22067330 (Version 1)
Quarter: 2023Q1

REPORT INFORMATION
  Report Type: Spontaneous
  Country: US (occurrence: US)
  Receive Date: 20230307
  Receipt Date: 20230307
  Transmission Date: 20230417
  Serious: No
  Sender: FDA-Public Use
  Company Number: US-VIIV HEALTHCARE LIMITED-US2023AMR031769

PATIENT
  Age: 38 Year
  Sex: Female

DRUGS (6)
  1. RILPIVIRINE [Suspect]
     Active Substance: RILPIVIRINE
     Indication: HIV infection
     Dosage: UNK UNK, Z (EVERY MONTH FOR 2 MONTHS)
     Route: 030
     Dates: start: 20221029, end: 20230224
  2. RILPIVIRINE [Suspect]
     Active Substance: RILPIVIRINE
     Dosage: UNK UNK, Z (EVERY MONTH FOR 2 MONTHS)
     Route: 030
  3. RILPIVIRINE [Suspect]
     Active Substance: RILPIVIRINE
     Dosage: UNK UNK, Z (EVERY OTHER MONTH)
     Route: 030
  4. CABOTEGRAVIR [Suspect]
     Active Substance: CABOTEGRAVIR
     Indication: HIV infection
     Dosage: UNK UNK, Z (EVERY MONTH FOR 2 MONTHS)
     Route: 030
     Dates: start: 20221029, end: 20230224
  5. CABOTEGRAVIR [Suspect]
     Active Substance: CABOTEGRAVIR
     Dosage: UNK UNK, Z (EVERY MONTH FOR 2 MONTHS)
     Route: 030
  6. CABOTEGRAVIR [Suspect]
     Active Substance: CABOTEGRAVIR
     Dosage: UNK UNK, Z (EVERY OTHER MONTH)
     Route: 030

REACTIONS (1)
  - Pregnancy [Not Recovered/Not Resolved]

NARRATIVE: CASE EVENT DATE: 20230224
